FAERS Safety Report 21237353 (Version 1)
Quarter: 2022Q3

REPORT INFORMATION
  Report Type: Other
  Country: US (occurrence: None)
  Receive Date: 20220822
  Receipt Date: 20220822
  Transmission Date: 20221027
  Serious: Yes (Other)
  Sender: FDA-Public Use
  Company Number: US-ROCHE-3161354

PATIENT
  Sex: Female

DRUGS (1)
  1. OCREVUS [Suspect]
     Active Substance: OCRELIZUMAB
     Indication: Relapsing multiple sclerosis
     Dosage: THEN INFUSE 600 MG EVERY 6 MONTHS, DATE OF TREATMENT: 07/DEC/2021,
     Route: 065
     Dates: start: 20211101

REACTIONS (1)
  - Kidney infection [Not Recovered/Not Resolved]
